FAERS Safety Report 10196027 (Version 2)
Quarter: 2014Q2

REPORT INFORMATION
  Report Type: Spontaneous
  Country: FR (occurrence: None)
  Receive Date: 20140521
  Receipt Date: 20140611
  Transmission Date: 20141212
  Serious: Yes (Other)
  Sender: FDA-Public Use
  Company Number: 2014/035

PATIENT
  Age: 30 Year
  Sex: Female
  Weight: 67 kg

DRUGS (1)
  1. MODAFINIL [Suspect]
     Indication: HYPERSOMNIA
     Route: 048
     Dates: start: 20140401, end: 20140422

REACTIONS (5)
  - Drug effect incomplete [None]
  - Incorrect dose administered [None]
  - Somnambulism [None]
  - Drug ineffective [None]
  - Product substitution issue [None]
